FAERS Safety Report 8481018-9 (Version None)
Quarter: 2012Q3

REPORT INFORMATION
  Report Type: 
  Country: None (occurrence: None)
  Receive Date: 20120702
  Receipt Date: 20120620
  Transmission Date: 20120928
  Serious: Yes (Other)
  Sender: FDA-Public Use
  Company Number: US-JNJFOC-20120611531

PATIENT
  Sex: Male
  Weight: 94.35 kg

DRUGS (5)
  1. INVEGA SUSTENNA [Suspect]
     Indication: MENTAL DISORDER
     Route: 030
     Dates: start: 20120101
  2. INVEGA SUSTENNA [Suspect]
     Route: 030
     Dates: start: 20120101
  3. NEXIUM [Concomitant]
     Indication: GASTROOESOPHAGEAL REFLUX DISEASE
     Route: 048
     Dates: start: 20070101
  4. INVEGA SUSTENNA [Suspect]
     Route: 030
     Dates: start: 20120301
  5. INVEGA SUSTENNA [Suspect]
     Indication: AUTISM
     Route: 030
     Dates: start: 20120301

REACTIONS (3)
  - INCORRECT DOSE ADMINISTERED [None]
  - MEDICATION ERROR [None]
  - TARDIVE DYSKINESIA [None]
